FAERS Safety Report 9360882 (Version 2)
Quarter: 2013Q2

REPORT INFORMATION
  Report Type: Spontaneous
  Country: US (occurrence: US)
  Receive Date: 20130621
  Receipt Date: 20130626
  Transmission Date: 20140414
  Serious: Yes (Other)
  Sender: FDA-Public Use
  Company Number: US-PFIZER INC-2013183934

PATIENT
  Age: 62 Year
  Sex: Male

DRUGS (4)
  1. SUTENT [Suspect]
     Indication: RENAL CELL CARCINOMA
     Dosage: UNK
     Dates: start: 20110606
  2. SUTENT [Suspect]
     Dosage: UNK
     Dates: end: 201206
  3. SUTENT [Suspect]
     Dosage: UNK
     Dates: end: 201207
  4. SUTENT [Suspect]
     Dosage: UNK
     Dates: end: 201209

REACTIONS (4)
  - Joint injury [Unknown]
  - Diarrhoea [Unknown]
  - Disease progression [Unknown]
  - Renal cell carcinoma [Unknown]
